FAERS Safety Report 15765266 (Version 1)
Quarter: 2018Q4

REPORT INFORMATION
  Report Type: Report from Study
  Country: US (occurrence: US)
  Receive Date: 20181227
  Receipt Date: 20181227
  Transmission Date: 20190205
  Serious: Yes (Other)
  Sender: FDA-Public Use
  Company Number: US-SA-2018SA392096

PATIENT
  Age: 61 Year
  Sex: Female

DRUGS (1)
  1. DRONEDARONE [Suspect]
     Active Substance: DRONEDARONE
     Indication: ARRHYTHMIA PROPHYLAXIS
     Dosage: 14 MG, QD
     Route: 048
     Dates: start: 2002

REACTIONS (3)
  - Cardiac operation [Unknown]
  - Aortic valve replacement [Unknown]
  - Chronic obstructive pulmonary disease [Not Recovered/Not Resolved]

NARRATIVE: CASE EVENT DATE: 2002
